FAERS Safety Report 8922242 (Version 1)
Quarter: 2012Q4

REPORT INFORMATION
  Report Type: 
  Country: US (occurrence: US)
  Receive Date: 20121123
  Receipt Date: 20121123
  Transmission Date: 20130627
  Serious: Yes (Death)
  Sender: FDA-Public Use
  Company Number: PHEH2012US022784

PATIENT

DRUGS (1)
  1. RECLAST [Suspect]
     Dosage: UNK
     Route: 042

REACTIONS (2)
  - Colon cancer [Fatal]
  - Pain [Unknown]
